FAERS Safety Report 12625766 (Version 6)
Quarter: 2018Q1

REPORT INFORMATION
  Report Type: Spontaneous
  Country: US (occurrence: US)
  Receive Date: 20160805
  Receipt Date: 20180315
  Transmission Date: 20180508
  Serious: Yes (Hospitalization, Other)
  Sender: FDA-Public Use
  Company Number: US-PFIZER INC-2014154666

PATIENT
  Age: 44 Year
  Sex: Male
  Weight: 71 kg

DRUGS (3)
  1. RAPAMUNE [Suspect]
     Active Substance: SIROLIMUS
     Indication: LIVER TRANSPLANT
     Dosage: 2 MG, DAILY
     Route: 048
     Dates: start: 2005
  2. MYFORTIC [Suspect]
     Active Substance: MYCOPHENOLATE SODIUM
     Dosage: 720 MG, 2X/DAY, (MORNING AND EVENING)
     Dates: start: 2005
  3. RAPAMUNE [Suspect]
     Active Substance: SIROLIMUS
     Dosage: 2 MG, ALTERNATE DAY (EVERY OTHER DAY PER DOCTOR )
     Route: 048

REACTIONS (6)
  - Lower limb fracture [Recovered/Resolved]
  - Headache [Unknown]
  - Fall [Recovered/Resolved]
  - Femur fracture [Recovered/Resolved]
  - Product use in unapproved indication [Unknown]
  - Injury [Unknown]

NARRATIVE: CASE EVENT DATE: 2005
